FAERS Safety Report 20096178 (Version 1)
Quarter: 2021Q4

REPORT INFORMATION
  Report Type: Spontaneous
  Country: US (occurrence: US)
  Receive Date: 20211122
  Receipt Date: 20211122
  Transmission Date: 20220303
  Serious: No
  Sender: FDA-Public Use
  Company Number: US-ICU MEDICAL, INC.-ICU2021US00002

PATIENT

DRUGS (1)
  1. STERILE WATER FOR INJECTION [Suspect]
     Active Substance: WATER
     Indication: Product used for unknown indication
     Dosage: 2000 MILLILITER
     Route: 042

REACTIONS (2)
  - Product quality issue [Unknown]
  - No adverse event [None]

NARRATIVE: CASE EVENT DATE: 20210107
